FAERS Safety Report 16905975 (Version 1)
Quarter: 2019Q4

REPORT INFORMATION
  Report Type: Spontaneous
  Country: US (occurrence: US)
  Receive Date: 20190819
  Receipt Date: 20190819
  Transmission Date: 20200122
  Serious: No
  Sender: FDA-Public Use
  Company Number: None

PATIENT
  Age: 69 Year
  Sex: Male

DRUGS (3)
  1. COUMADIN [Concomitant]
     Active Substance: WARFARIN SODIUM
  2. CAPECITABINE TAB 500MG [Suspect]
     Active Substance: CAPECITABINE
     Indication: CHOLANGIOCARCINOMA
     Route: 048
     Dates: start: 201908
  3. ASPIRIN. [Concomitant]
     Active Substance: ASPIRIN

REACTIONS (3)
  - Hypoaesthesia [None]
  - Peripheral swelling [None]
  - Erythema [None]

NARRATIVE: CASE EVENT DATE: 20190819
